FAERS Safety Report 18204907 (Version 1)
Quarter: 2020Q3

REPORT INFORMATION
  Report Type: Spontaneous
  Country: US (occurrence: US)
  Receive Date: 20200827
  Receipt Date: 20200827
  Transmission Date: 20201103
  Serious: Yes (Death, Other)
  Sender: FDA-Public Use
  Company Number: US-PURDUE-USA-2020-0163144

PATIENT
  Sex: Female

DRUGS (1)
  1. MORPHINE SULFATE (SIMILAR TO NDA 19?516) [Suspect]
     Active Substance: MORPHINE SULFATE
     Indication: PRODUCT USED FOR UNKNOWN INDICATION
     Route: 048

REACTIONS (16)
  - Obesity [Unknown]
  - Respiratory failure [Unknown]
  - Mental disorder [Unknown]
  - Bradycardia [Unknown]
  - Pulmonary hypertension [Fatal]
  - Depression [Unknown]
  - Essential hypertension [Unknown]
  - Unresponsive to stimuli [Unknown]
  - Hypotension [Unknown]
  - Analgesic therapy [Unknown]
  - Toxicity to various agents [Unknown]
  - Cardiac failure congestive [Fatal]
  - Right ventricular failure [Fatal]
  - Overdose [Unknown]
  - Judgement impaired [Unknown]
  - Atrial fibrillation [Unknown]
